FAERS Safety Report 5856646-7 (Version None)
Quarter: 2008Q3

REPORT INFORMATION
  Report Type: 
  Country: None (occurrence: None)
  Receive Date: 20080825
  Receipt Date: 20080819
  Transmission Date: 20090109
  Serious: Yes (Hospitalization)
  Sender: FDA-Public Use
  Company Number: KR-WYE-H04540208

PATIENT
  Sex: Male
  Weight: 54 kg

DRUGS (10)
  1. SIROLIMUS [Suspect]
     Indication: PROPHYLAXIS AGAINST TRANSPLANT REJECTION
     Route: 048
     Dates: start: 20070717, end: 20080702
  2. TENORMIN [Concomitant]
     Indication: HYPERTENSION
     Route: 048
     Dates: start: 20070719
  3. DILATREND [Concomitant]
     Indication: HYPERTENSION
     Route: 048
     Dates: start: 20070719
  4. CALCORT [Concomitant]
     Indication: PROPHYLAXIS AGAINST TRANSPLANT REJECTION
     Route: 048
     Dates: start: 20080517
  5. LIVALO [Concomitant]
     Indication: HYPERCHOLESTEROLAEMIA
     Route: 048
     Dates: start: 20070814
  6. PRIMAQUINE [Concomitant]
     Indication: PNEUMONIA
     Route: 048
     Dates: start: 20080426
  7. DAPSONE [Concomitant]
     Indication: PNEUMONIA
     Route: 048
     Dates: start: 20080425, end: 20080703
  8. STILLEN [Concomitant]
     Indication: ANTACID THERAPY
     Route: 048
     Dates: start: 20080509, end: 20080704
  9. ADALAT [Concomitant]
     Indication: HYPERTENSION
     Route: 048
     Dates: start: 20070714
  10. FENOFIBRATE [Concomitant]
     Indication: HYPERCHOLESTEROLAEMIA
     Route: 048
     Dates: start: 20070719

REACTIONS (2)
  - PNEUMOTHORAX [None]
  - PULMONARY CAVITATION [None]
